FAERS Safety Report 4709982-1 (Version None)
Quarter: 2005Q3

REPORT INFORMATION
  Report Type: 
  Country: None (occurrence: None)
  Receive Date: 20050708
  Receipt Date: 20050628
  Transmission Date: 20060218
  Serious: Yes (Hospitalization)
  Sender: FDA-Public Use
  Company Number: 200512189FR

PATIENT
  Age: 82 Year
  Sex: Female

DRUGS (5)
  1. LASIX [Suspect]
     Route: 048
  2. PLAVIX [Suspect]
     Route: 048
     Dates: start: 20030101
  3. DEROXAT [Suspect]
     Route: 048
     Dates: start: 20030101
  4. LYTOS [Suspect]
     Route: 048
     Dates: start: 20040401
  5. AROMASIN [Suspect]
     Route: 048
     Dates: start: 20040401

REACTIONS (9)
  - ASPARTATE AMINOTRANSFERASE INCREASED [None]
  - BLOOD CREATINE PHOSPHOKINASE INCREASED [None]
  - BLOOD PRESSURE SYSTOLIC INCREASED [None]
  - C-REACTIVE PROTEIN INCREASED [None]
  - CLUMSINESS [None]
  - DISORIENTATION [None]
  - FALL [None]
  - HAEMATOMA [None]
  - PERIORBITAL HAEMATOMA [None]
